FAERS Safety Report 21225425 (Version 1)
Quarter: 2022Q3

REPORT INFORMATION
  Report Type: Spontaneous
  Country: US (occurrence: US)
  Receive Date: 20220818
  Receipt Date: 20220818
  Transmission Date: 20221027
  Serious: No
  Sender: FDA-Public Use
  Company Number: US-BRISTOL-MYERS SQUIBB COMPANY-2022-082885

PATIENT
  Age: 94 Year
  Sex: Male
  Weight: 81.6 kg

DRUGS (11)
  1. ELIQUIS [Suspect]
     Active Substance: APIXABAN
     Indication: Cerebrovascular accident prophylaxis
     Route: 048
     Dates: start: 20220516
  2. LISINOPRIL [Concomitant]
     Active Substance: LISINOPRIL
  3. ISOSORBIDE [Concomitant]
     Active Substance: ISOSORBIDE
     Dosage: ISOSORBIDE -    30MG
  4. FUROSEMIDE [Concomitant]
     Active Substance: FUROSEMIDE
  5. EZETIMIBE [Concomitant]
     Active Substance: EZETIMIBE
     Dosage: EZETIMIBE - 10MG
  6. AMLODIPINE [Concomitant]
     Active Substance: AMLODIPINE BESYLATE
     Dosage: AMLODIPINE - 5MG
  7. ATENOLOL [Concomitant]
     Active Substance: ATENOLOL
     Dosage: ATENOLOL - 100MG
  8. PRAVASTATIN [Concomitant]
     Active Substance: PRAVASTATIN
     Dosage: PRAVASTATIN - 40MG
  9. TAMSULOSIN [Concomitant]
     Active Substance: TAMSULOSIN
     Dosage: TAMSULOSIN - .4MG
  10. LOSARTAN [Concomitant]
     Active Substance: LOSARTAN
     Dosage: LOSARTAN - 25MG
  11. NITROGLYCERIN [Concomitant]
     Active Substance: NITROGLYCERIN

REACTIONS (4)
  - Hypotension [Recovered/Resolved]
  - Peripheral swelling [Not Recovered/Not Resolved]
  - Incontinence [Unknown]
  - Weight increased [Unknown]

NARRATIVE: CASE EVENT DATE: 20220101
